FAERS Safety Report 8477412-2 (Version None)
Quarter: 2012Q2

REPORT INFORMATION
  Report Type: 
  Country: None (occurrence: None)
  Receive Date: 20120629
  Receipt Date: 20120622
  Transmission Date: 20120825
  Serious: Yes (Hospitalization)
  Sender: FDA-Public Use
  Company Number: US-BAYER-2011-047204

PATIENT
  Age: 35 Year
  Sex: Female
  Weight: 56.689 kg

DRUGS (5)
  1. YAZ [Suspect]
     Indication: CONTRACEPTION
     Dosage: UNK
     Dates: start: 20080101, end: 20090101
  2. YAZ [Suspect]
     Indication: PREMENSTRUAL SYNDROME
  3. YASMIN [Suspect]
     Indication: PREMENSTRUAL SYNDROME
  4. YASMIN [Suspect]
     Indication: CONTRACEPTION
     Dosage: UNK
     Dates: start: 20050101, end: 20080101
  5. NEXIUM [Concomitant]
     Dosage: UNK
     Dates: start: 20090401

REACTIONS (9)
  - ABDOMINAL PAIN UPPER [None]
  - INJURY [None]
  - ANXIETY [None]
  - CHOLECYSTITIS [None]
  - EMOTIONAL DISTRESS [None]
  - CHOLELITHIASIS [None]
  - FEAR [None]
  - PSYCHOLOGICAL TRAUMA [None]
  - PAIN [None]
